FAERS Safety Report 9775934 (Version 1)
Quarter: 2013Q4

REPORT INFORMATION
  Report Type: Spontaneous
  Country: ES (occurrence: None)
  Receive Date: 20131219
  Receipt Date: 20131219
  Transmission Date: 20140711
  Serious: Yes (Hospitalization)
  Sender: FDA-Public Use
  Company Number: 2013AP010544

PATIENT
  Age: 27 Year
  Sex: Male

DRUGS (10)
  1. IBUPROFEN (IBUPROFEN) [Suspect]
  2. MIRTAZAPINE (MIRTAZAPINE) [Suspect]
     Indication: SUICIDE ATTEMPT
  3. CIPROFLOXACIN (CIPROFLOXACIN) [Suspect]
     Indication: SUICIDE ATTEMPT
  4. DEXKETOPROFEN [Suspect]
     Indication: SUICIDE ATTEMPT
  5. DIAZEPAM (DIAZEPAM) [Suspect]
     Indication: SUICIDE ATTEMPT
  6. FLURAZEPAM [Suspect]
     Indication: SUICIDE ATTEMPT
  7. RUPATADINE [Suspect]
     Indication: SUICIDE ATTEMPT
  8. ANTIDEPRESSANTS (ANTIDEPRESSANTS) [Concomitant]
  9. ANXIOLYTICS (ANXIOLYTICS) [Concomitant]
  10. NSAID^S (NSAID^S) [Concomitant]

REACTIONS (10)
  - Renal failure acute [None]
  - Depressed level of consciousness [None]
  - Toxicity to various agents [None]
  - Anuria [None]
  - Pyrexia [None]
  - Aspiration bronchial [None]
  - Electrocardiogram QT prolonged [None]
  - Overdose [None]
  - Wheezing [None]
  - Rhonchi [None]
